FAERS Safety Report 7196630-7 (Version None)
Quarter: 2010Q4

REPORT INFORMATION
  Report Type: 
  Country: None (occurrence: None)
  Receive Date: 20101223
  Receipt Date: 20101028
  Transmission Date: 20110411
  Serious: No
  Sender: FDA-Public Use
  Company Number: US-AMGEN-USASP2010002245

PATIENT

DRUGS (1)
  1. ENBREL [Suspect]
     Indication: RHEUMATOID ARTHRITIS
     Dates: start: 20100101

REACTIONS (7)
  - ARTHRALGIA [None]
  - ARTHRITIS [None]
  - EYELID OEDEMA [None]
  - FATIGUE [None]
  - INJECTION SITE PAIN [None]
  - RASH [None]
  - SWELLING [None]
